FAERS Safety Report 17204621 (Version 3)
Quarter: 2022Q2

REPORT INFORMATION
  Report Type: Spontaneous
  Country: US (occurrence: None)
  Receive Date: 20191226
  Receipt Date: 20220412
  Transmission Date: 20220720
  Serious: Yes (Other)
  Sender: FDA-Public Use
  Company Number: 2019SF85886

PATIENT
  Age: 67 Year
  Sex: Female
  Weight: 70.3 kg

DRUGS (43)
  1. PRILOSEC OTC [Suspect]
     Active Substance: OMEPRAZOLE MAGNESIUM
     Indication: Gastrooesophageal reflux disease
     Route: 048
     Dates: start: 201301, end: 201812
  2. PRILOSEC OTC [Suspect]
     Active Substance: OMEPRAZOLE MAGNESIUM
     Indication: Gastrooesophageal reflux disease
     Route: 048
     Dates: start: 2013, end: 2018
  3. OMEPRAZOLE [Suspect]
     Active Substance: OMEPRAZOLE
     Indication: Gastrooesophageal reflux disease
     Route: 065
     Dates: start: 2014
  4. PROTONIX [Suspect]
     Active Substance: PANTOPRAZOLE SODIUM
     Indication: Gastrooesophageal reflux disease
     Route: 065
     Dates: start: 201301, end: 201812
  5. PROTONIX [Suspect]
     Active Substance: PANTOPRAZOLE SODIUM
     Indication: Gastrooesophageal reflux disease
     Route: 065
     Dates: start: 2015
  6. PROTONIX [Suspect]
     Active Substance: PANTOPRAZOLE SODIUM
     Indication: Gastrooesophageal reflux disease
     Dosage: GENERIC
     Route: 065
     Dates: end: 2019
  7. LISINOPRIL [Concomitant]
     Active Substance: LISINOPRIL
     Indication: Blood pressure measurement
     Dates: start: 1995, end: 2017
  8. AMOXICILLIN [Concomitant]
     Active Substance: AMOXICILLIN
     Indication: Antibiotic therapy
  9. AMPICILLIN [Concomitant]
     Active Substance: AMPICILLIN
     Indication: Antibiotic therapy
  10. CEPHALEXIN [Concomitant]
     Active Substance: CEPHALEXIN
     Indication: Antibiotic therapy
  11. CEFPROZIL [Concomitant]
     Active Substance: CEFPROZIL
     Indication: Antibiotic therapy
  12. ERYTHROMYCIN [Concomitant]
     Active Substance: ERYTHROMYCIN
     Indication: Antibiotic therapy
  13. PENICILLIN [Concomitant]
     Active Substance: PENICILLIN
     Indication: Antibiotic therapy
  14. TRIAMTERENE [Concomitant]
     Active Substance: TRIAMTERENE
     Indication: Blood pressure measurement
     Dates: start: 1995, end: 2020
  15. HYDROCHLOROTHIAZIDE [Concomitant]
     Active Substance: HYDROCHLOROTHIAZIDE
     Dates: start: 2020
  16. LIPITOR [Concomitant]
     Active Substance: ATORVASTATIN CALCIUM
     Indication: Hypertension
     Dates: start: 2010, end: 2020
  17. POTASSIUM CHLORIDE [Concomitant]
     Active Substance: POTASSIUM CHLORIDE
     Indication: Hypokalaemia
     Dates: start: 2020
  18. ASPIRIN [Concomitant]
     Active Substance: ASPIRIN
     Dates: start: 2013
  19. VITAMINS [Concomitant]
     Active Substance: VITAMINS
     Dates: start: 2017
  20. VITAMIN B12 [Concomitant]
     Active Substance: CYANOCOBALAMIN
     Dates: start: 2017
  21. CALCIUM [Concomitant]
     Active Substance: CALCIUM
     Dates: start: 2017
  22. VITAMIN D3 [Concomitant]
     Active Substance: CHOLECALCIFEROL
     Dates: start: 2017
  23. RANITIDINE [Concomitant]
     Active Substance: RANITIDINE
     Dates: start: 2011
  24. NEOMYCIN/ACETIC ACID/DEXAMETHASONE [Concomitant]
  25. POLYETHYLENE GLYCOL [Concomitant]
     Active Substance: POLYETHYLENE GLYCOL
  26. CODEINE [Concomitant]
     Active Substance: CODEINE
  27. ACETAMINOPHEN [Concomitant]
     Active Substance: ACETAMINOPHEN
  28. CIPRO [Concomitant]
     Active Substance: CIPROFLOXACIN HYDROCHLORIDE
  29. TOPIRAMATE [Concomitant]
     Active Substance: TOPIRAMATE
  30. FELODIPINE [Concomitant]
     Active Substance: FELODIPINE
  31. SIMVASTATIN [Concomitant]
     Active Substance: SIMVASTATIN
  32. LISINOPRIL [Concomitant]
     Active Substance: LISINOPRIL
  33. GABAPENTIN [Concomitant]
     Active Substance: GABAPENTIN
  34. LEVOTHYROXINE [Concomitant]
     Active Substance: LEVOTHYROXINE
  35. PREMARIN [Concomitant]
     Active Substance: ESTROGENS, CONJUGATED
  36. TRAMADOL [Concomitant]
     Active Substance: TRAMADOL
  37. HEPARIN [Concomitant]
     Active Substance: HEPARIN SODIUM
  38. INDOMETHACIN [Concomitant]
     Active Substance: INDOMETHACIN
  39. DIAZEPAM [Concomitant]
     Active Substance: DIAZEPAM
  40. PANTOPRAZOLE SODIUM [Concomitant]
     Active Substance: PANTOPRAZOLE SODIUM
  41. NITROFURATOIN MACROCRYST [Concomitant]
  42. SULFAMETHOXAZOLE\TRIMETHOPRIM [Concomitant]
     Active Substance: SULFAMETHOXAZOLE\TRIMETHOPRIM
  43. LEVOTHYROXINE SODIUM [Concomitant]
     Active Substance: LEVOTHYROXINE SODIUM

REACTIONS (2)
  - Chronic kidney disease [Not Recovered/Not Resolved]
  - Gastrooesophageal reflux disease [Not Recovered/Not Resolved]

NARRATIVE: CASE EVENT DATE: 20170101
